FAERS Safety Report 7559699-3 (Version None)
Quarter: 2011Q2

REPORT INFORMATION
  Report Type: 
  Country: None (occurrence: None)
  Receive Date: 20110621
  Receipt Date: 20110608
  Transmission Date: 20111010
  Serious: No
  Sender: FDA-Public Use
  Company Number: CA-ELI_LILLY_AND_COMPANY-CA201106002234

PATIENT
  Sex: Female

DRUGS (16)
  1. ZYPREXA ZYDIS [Suspect]
     Dosage: 10 MG, QD
  2. ZYPREXA ZYDIS [Suspect]
     Dosage: 2.5 MG, QD
  3. COGENTIN [Concomitant]
  4. RISPERDAL [Concomitant]
  5. SERAX [Concomitant]
  6. ZYPREXA [Suspect]
     Dosage: 5 MG, QD
  7. ZYPREXA ZYDIS [Suspect]
     Indication: SCHIZOPHRENIA, PARANOID TYPE
     Dosage: 5 MG, QD
  8. ZYPREXA ZYDIS [Suspect]
     Dosage: 15 MG, QD
  9. HALIDOL [Concomitant]
  10. ZYPREXA [Suspect]
     Indication: SCHIZOPHRENIA, PARANOID TYPE
     Dosage: 10 MG, QD
  11. ZYPREXA [Suspect]
     Dosage: 7.5 MG, QD
  12. ZYPREXA [Suspect]
     Dosage: 2.5 MG, QD
  13. ZYPREXA ZYDIS [Suspect]
     Dosage: 20 MG, QD
  14. ATIVAN [Concomitant]
  15. ALESSE [Concomitant]
  16. INDAPAMIDE [Concomitant]

REACTIONS (8)
  - DIABETES MELLITUS [None]
  - VAGINAL HAEMORRHAGE [None]
  - ANAEMIA [None]
  - MENOMETRORRHAGIA [None]
  - DYSLIPIDAEMIA [None]
  - TACHYCARDIA [None]
  - WEIGHT INCREASED [None]
  - METABOLIC SYNDROME [None]
